FAERS Safety Report 25877529 (Version 1)
Quarter: 2025Q4

REPORT INFORMATION
  Report Type: Report from Study
  Country: US (occurrence: US)
  Receive Date: 20251003
  Receipt Date: 20251003
  Transmission Date: 20260118
  Serious: Yes (Other)
  Sender: TAKEDA
  Company Number: US-TAKEDA-2024TUS099485

PATIENT
  Age: 41 Year
  Sex: Female

DRUGS (2)
  1. VEDOLIZUMAB [Suspect]
     Active Substance: VEDOLIZUMAB
     Indication: Colitis ulcerative
     Dosage: 108 MILLIGRAM, Q2WEEKS
     Dates: start: 20240604
  2. VEDOLIZUMAB [Suspect]
     Active Substance: VEDOLIZUMAB

REACTIONS (13)
  - Colitis ulcerative [Unknown]
  - Skin irritation [Unknown]
  - Memory impairment [Unknown]
  - Product dose omission issue [Unknown]
  - Impaired quality of life [Unknown]
  - Drug ineffective [Not Recovered/Not Resolved]
  - Infection [Unknown]
  - Diarrhoea [Unknown]
  - Vomiting [Unknown]
  - Injection site reaction [Unknown]
  - Rash [Not Recovered/Not Resolved]
  - Arthralgia [Unknown]
  - Nausea [Unknown]
